FAERS Safety Report 13210697 (Version 1)
Quarter: 2017Q1

REPORT INFORMATION
  Report Type: Spontaneous
  Country: US (occurrence: US)
  Receive Date: 20170209
  Receipt Date: 20170209
  Transmission Date: 20170428
  Serious: Yes (Hospitalization)
  Sender: FDA-Public Use
  Company Number: None

PATIENT
  Age: 59 Year
  Sex: Female
  Weight: 84.7 kg

DRUGS (7)
  1. RANITIDINE. [Concomitant]
     Active Substance: RANITIDINE
  2. GLIMEPERIDE [Concomitant]
     Active Substance: GLIMEPIRIDE
  3. COENZYME Q10 [Concomitant]
     Active Substance: UBIDECARENONE
  4. ATENOLOL. [Concomitant]
     Active Substance: ATENOLOL
  5. LEVEMIR [Concomitant]
     Active Substance: INSULIN DETEMIR
  6. LIPITOR [Concomitant]
     Active Substance: ATORVASTATIN CALCIUM
  7. VICTOZA [Suspect]
     Active Substance: LIRAGLUTIDE
     Indication: DIABETES MELLITUS
     Route: 058

REACTIONS (1)
  - Pancreatitis [None]

NARRATIVE: CASE EVENT DATE: 20170130
